FAERS Safety Report 18286714 (Version 4)
Quarter: 2020Q4

REPORT INFORMATION
  Report Type: Spontaneous
  Country: US (occurrence: US)
  Receive Date: 20200921
  Receipt Date: 20201228
  Transmission Date: 20210113
  Serious: No
  Sender: FDA-Public Use
  Company Number: US-SA-2020SA248401

PATIENT

DRUGS (1)
  1. DUPIXENT [Suspect]
     Active Substance: DUPILUMAB
     Indication: DERMATITIS ATOPIC
     Dosage: 300 MG, QOW
     Route: 058
     Dates: start: 20200903

REACTIONS (8)
  - Injection site erythema [Unknown]
  - Pruritus [Unknown]
  - Sleep disorder [Unknown]
  - Injection site swelling [Unknown]
  - Skin exfoliation [Unknown]
  - Skin fissures [Unknown]
  - Flank pain [Unknown]
  - Device deployment issue [Unknown]

NARRATIVE: CASE EVENT DATE: 2020
